FAERS Safety Report 11458086 (Version 1)
Quarter: 2015Q3

REPORT INFORMATION
  Report Type: Spontaneous
  Country: AU (occurrence: AU)
  Receive Date: 20150904
  Receipt Date: 20150904
  Transmission Date: 20151125
  Serious: Yes (Death)
  Sender: FDA-Public Use
  Company Number: AU-CELGENE-AUS-2014125707

PATIENT
  Age: 85 Year
  Sex: Female

DRUGS (1)
  1. ROMIDEPSIN [Suspect]
     Active Substance: ROMIDEPSIN
     Indication: T-CELL PROLYMPHOCYTIC LEUKAEMIA
     Route: 041
     Dates: start: 201312, end: 201407

REACTIONS (3)
  - Pneumonia [Fatal]
  - Escherichia sepsis [Fatal]
  - Peripheral T-cell lymphoma unspecified [Unknown]

NARRATIVE: CASE EVENT DATE: 201410
